FAERS Safety Report 10433975 (Version 1)
Quarter: 2014Q3

REPORT INFORMATION
  Report Type: Spontaneous
  Country: US (occurrence: DK)
  Receive Date: 20140905
  Receipt Date: 20140905
  Transmission Date: 20150326
  Serious: Yes (Life-Threatening, Hospitalization, Other)
  Sender: FDA-Public Use
  Company Number: DK-TEVA-505295ISR

PATIENT
  Age: 20 Year
  Sex: Female

DRUGS (3)
  1. PANTOPRAZOLE [Concomitant]
     Active Substance: PANTOPRAZOLE SODIUM
     Dosage: 120 MILLIGRAM DAILY;
  2. CYKLONOVA [Suspect]
     Active Substance: TRANEXAMIC ACID
     Dosage: 4500 MILLIGRAM DAILY;
     Dates: start: 20140521
  3. IBUPROFEN. [Suspect]
     Active Substance: IBUPROFEN
     Dosage: 6000 MILLIGRAM DAILY;
     Dates: start: 20140521

REACTIONS (2)
  - Suicide attempt [Recovered/Resolved]
  - Overdose [Recovered/Resolved]
